FAERS Safety Report 6555015-4 (Version None)
Quarter: 2010Q1

REPORT INFORMATION
  Report Type: 
  Country: None (occurrence: None)
  Receive Date: 20100126
  Receipt Date: 20100126
  Transmission Date: 20100710
  Serious: No
  Sender: FDA-Public Use
  Company Number: None

PATIENT
  Age: 31 Year
  Sex: Female
  Weight: 59.1 kg

DRUGS (2)
  1. PAXIL [Suspect]
     Indication: ANXIETY
     Dosage: PAXIL 20MG DAILY PILL PURCHASED AT WALMART
     Dates: start: 20080901, end: 20090501
  2. PAXIL [Suspect]
     Indication: DEPRESSION
     Dosage: PAXIL 20MG DAILY PILL PURCHASED AT WALMART
     Dates: start: 20080901, end: 20090501

REACTIONS (2)
  - PARAESTHESIA [None]
  - TINNITUS [None]
